FAERS Safety Report 17412302 (Version 1)
Quarter: 2020Q1

REPORT INFORMATION
  Report Type: Spontaneous
  Country: DK (occurrence: DK)
  Receive Date: 20200213
  Receipt Date: 20200213
  Transmission Date: 20200409
  Serious: Yes (Hospitalization)
  Sender: FDA-Public Use
  Company Number: DK-TEVA-2020-DK-1184637

PATIENT
  Age: 77 Year
  Sex: Female

DRUGS (8)
  1. ATORVASTATIN ^TEVA^ [Suspect]
     Active Substance: ATORVASTATIN
     Indication: HYPERCHOLESTEROLAEMIA
     Dosage: STRENGTH: 40 MG.
     Route: 048
     Dates: start: 201509, end: 20200116
  2. MORPHINE [Concomitant]
     Active Substance: MORPHINE
     Indication: PAIN
     Dosage: STRENGTH: 10 MG. DOSE: 1 TABLET PN., NOT MORE THAN 2 TIMES DAILY.
     Route: 048
     Dates: start: 20150220
  3. BROMAM [Concomitant]
     Active Substance: BROMAZEPAM
     Indication: SEDATIVE THERAPY
     Dosage: STRENGTH: 3 MG.
     Route: 048
     Dates: start: 20140612
  4. LOSARTANKALIUM ^KRKA^ [Suspect]
     Active Substance: LOSARTAN
     Indication: HYPERTENSION
     Dosage: STRENGTH: 100 MG.
     Route: 048
     Dates: start: 201510, end: 202001
  5. PARACETAMOL [Concomitant]
     Active Substance: ACETAMINOPHEN
     Indication: PAIN
     Dosage: STRENGTH: 500 MG. (1000MG)
     Route: 048
  6. FRUSAMIL [Concomitant]
     Indication: DIURETIC THERAPY
     Dosage: STRENGTH: 40 + 5 MG.
     Route: 048
     Dates: start: 20150214
  7. FELODIPINE. [Concomitant]
     Active Substance: FELODIPINE
     Indication: HYPERTENSION
     Dosage: STRENGTH: 5 MG.
     Route: 048
     Dates: start: 20180417
  8. NITROGLYCERIN ^DAK^ [Concomitant]
     Indication: CHEST PAIN
     Dosage: STRENGTH: 0.25 MG.
     Route: 048
     Dates: start: 20180220

REACTIONS (7)
  - Blood alkaline phosphatase increased [Unknown]
  - Chromaturia [Unknown]
  - Nausea [Unknown]
  - Blood bilirubin increased [Unknown]
  - Jaundice [Unknown]
  - Alanine aminotransferase increased [Unknown]
  - Faeces discoloured [Unknown]

NARRATIVE: CASE EVENT DATE: 202001
